FAERS Safety Report 7308861-3 (Version None)
Quarter: 2011Q1

REPORT INFORMATION
  Report Type: 
  Country: None (occurrence: None)
  Receive Date: 20110211
  Receipt Date: 20110207
  Transmission Date: 20110831
  Serious: Yes (Other)
  Sender: FDA-Public Use
  Company Number: A0912243A

PATIENT
  Sex: Female

DRUGS (1)
  1. UREA HYDROGEN PEROXIDE (FORMULATION UNKNOWN)(UREA HYDROGEN PEROXIDE) [Suspect]
     Dosage: 5 DROPS(S) /EARDROPS

REACTIONS (2)
  - EAR DISCOMFORT [None]
  - DEAFNESS [None]
